FAERS Safety Report 8771070 (Version 1)
Quarter: 2012Q4

REPORT INFORMATION
  Report Type: 
  Country: US (occurrence: US)
  Receive Date: 20120906
  Receipt Date: 20120906
  Transmission Date: 20130627
  Serious: No
  Sender: FDA-Public Use
  Company Number: US-PFIZER INC-2012216546

PATIENT
  Sex: Female

DRUGS (3)
  1. ACCUPRIL [Suspect]
     Dosage: 10 mg, UNK
  2. LIPITOR [Concomitant]
     Dosage: UNK
  3. ZOLOFT [Concomitant]
     Dosage: UNK

REACTIONS (1)
  - Feeling abnormal [Unknown]
